FAERS Safety Report 5523704-6 (Version None)
Quarter: 2007Q4

REPORT INFORMATION
  Report Type: 
  Country: None (occurrence: None)
  Receive Date: 20071121
  Receipt Date: 20071115
  Transmission Date: 20080405
  Serious: Yes (Other)
  Sender: FDA-Public Use
  Company Number: DE-JNJFOC-20071105647

PATIENT
  Age: 24 Year
  Sex: Male

DRUGS (4)
  1. INVEGA [Suspect]
     Route: 048
  2. INVEGA [Suspect]
     Indication: DRUG USE FOR UNKNOWN INDICATION
     Route: 048
  3. SEROQUEL [Concomitant]
  4. CIPRALEX [Concomitant]

REACTIONS (2)
  - AKATHISIA [None]
  - WEIGHT INCREASED [None]
